FAERS Safety Report 6677242-8 (Version None)
Quarter: 2010Q2

REPORT INFORMATION
  Report Type: 
  Country: None (occurrence: None)
  Receive Date: 20100408
  Receipt Date: 20100408
  Transmission Date: 20101027
  Serious: No
  Sender: FDA-Public Use
  Company Number: None

PATIENT
  Age: 56 Year
  Sex: Male
  Weight: 83.9154 kg

DRUGS (2)
  1. DILAUDID [Suspect]
     Indication: PROCEDURAL PAIN
     Dosage: 0.2 MG Q 5MIN PRN IV
     Route: 042
     Dates: start: 20100129
  2. FENTANYL [Suspect]
     Dosage: 50 MG Q 5 MIN PRN IV
     Route: 042

REACTIONS (2)
  - ASTHENIA [None]
  - BLOOD PRESSURE DECREASED [None]
